FAERS Safety Report 9687339 (Version 1)
Quarter: 2013Q4

REPORT INFORMATION
  Report Type: Spontaneous
  Country: US (occurrence: US)
  Receive Date: 20131114
  Receipt Date: 20131114
  Transmission Date: 20140711
  Serious: Yes (Hospitalization)
  Sender: FDA-Public Use
  Company Number: US-BIOGENIDEC-2013BI107876

PATIENT
  Sex: Female

DRUGS (1)
  1. AVONEX [Suspect]
     Indication: MULTIPLE SCLEROSIS
     Route: 030
     Dates: start: 19990901

REACTIONS (4)
  - Urinary tract infection [Recovered/Resolved]
  - Cholecystectomy [Recovered/Resolved]
  - Small intestinal resection [Recovered/Resolved]
  - Appendicectomy [Recovered/Resolved]
